FAERS Safety Report 7923588-2 (Version None)
Quarter: 2011Q4

REPORT INFORMATION
  Report Type: 
  Country: None (occurrence: None)
  Receive Date: 20111117
  Receipt Date: 20110204
  Transmission Date: 20120403
  Serious: No
  Sender: FDA-Public Use
  Company Number: US-AMGEN-USASP2011006886

PATIENT
  Sex: Female

DRUGS (6)
  1. HUMIRA [Concomitant]
  2. ENBREL [Suspect]
     Indication: PSORIASIS
  3. ENBREL [Suspect]
     Indication: PSORIATIC ARTHROPATHY
  4. STELARA [Concomitant]
  5. METHOTREXATE [Concomitant]
  6. ENBREL [Suspect]
     Indication: RHEUMATOID ARTHRITIS
     Dates: start: 20070101

REACTIONS (3)
  - ARTHRALGIA [None]
  - INJECTION SITE PAIN [None]
  - PSORIASIS [None]
